FAERS Safety Report 7693796-7 (Version None)
Quarter: 2011Q3

REPORT INFORMATION
  Report Type: 
  Country: None (occurrence: None)
  Receive Date: 20110819
  Receipt Date: 20110510
  Transmission Date: 20111222
  Serious: No
  Sender: FDA-Public Use
  Company Number: US-ALLERGAN-1106384US

PATIENT
  Age: 83 Year
  Sex: Male

DRUGS (1)
  1. LASTACAFT [Suspect]
     Indication: EYE DISORDER
     Dosage: 1 DROP INSTILLED ONCE DAILY TO EACH EYE
     Route: 047

REACTIONS (4)
  - SNEEZING [None]
  - NASAL CONGESTION [None]
  - THROAT IRRITATION [None]
  - DYSPHAGIA [None]
